FAERS Safety Report 7281263-4 (Version None)
Quarter: 2011Q1

REPORT INFORMATION
  Report Type: 
  Country: None (occurrence: None)
  Receive Date: 20110208
  Receipt Date: 20110131
  Transmission Date: 20110831
  Serious: Yes (Death, Other)
  Sender: FDA-Public Use
  Company Number: CHPA2011US02074

PATIENT
  Age: 54 Year
  Sex: Female

DRUGS (3)
  1. ACETAMINOPHEN [Suspect]
  2. DRUG THERAPY NOS [Suspect]
  3. ACETAMINOPHEN W/ PROPOXYPHENE HCL [Suspect]

REACTIONS (2)
  - DEATH [None]
  - CARDIO-RESPIRATORY ARREST [None]
